FAERS Safety Report 6060647-6 (Version None)
Quarter: 2009Q1

REPORT INFORMATION
  Report Type: 
  Country: None (occurrence: None)
  Receive Date: 20090130
  Receipt Date: 20090130
  Transmission Date: 20090719
  Serious: Yes (Life-Threatening, Hospitalization)
  Sender: FDA-Public Use
  Company Number: None

PATIENT
  Age: 78 Year
  Sex: Male
  Weight: 88.905 kg

DRUGS (2)
  1. SOLARAZE [Suspect]
     Indication: PHOTODERMATOSIS
     Dosage: SMALL TWICE DAILY
     Dates: start: 20090102, end: 20090107
  2. SOLARAZE [Suspect]

REACTIONS (3)
  - BLOOD PRESSURE INCREASED [None]
  - CHEST DISCOMFORT [None]
  - PANCREATITIS [None]
